FAERS Safety Report 4918573-9 (Version None)
Quarter: 2006Q1

REPORT INFORMATION
  Report Type: 
  Country: None (occurrence: None)
  Receive Date: 20060217
  Receipt Date: 20060217
  Transmission Date: 20060701
  Serious: Yes (Hospitalization)
  Sender: FDA-Public Use
  Company Number: None

PATIENT
  Age: 60 Year
  Sex: Male
  Weight: 93.5 kg

DRUGS (1)
  1. WARFARIN SODIUM [Suspect]
     Indication: DEEP VEIN THROMBOSIS
     Dosage: 2 MG QPM PO

REACTIONS (14)
  - BLOOD ALBUMIN DECREASED [None]
  - BLOOD CALCIUM DECREASED [None]
  - BLOOD ELECTROLYTES ABNORMAL [None]
  - BLOOD MAGNESIUM DECREASED [None]
  - BLOOD PHOSPHORUS INCREASED [None]
  - DIABETES MELLITUS [None]
  - FUNGAL INFECTION [None]
  - HAEMOGLOBIN DECREASED [None]
  - INTERNATIONAL NORMALISED RATIO INCREASED [None]
  - RENAL DISORDER [None]
  - RENAL FAILURE ACUTE [None]
  - URETHRAL STENT INSERTION [None]
  - URINARY TRACT INFECTION STAPHYLOCOCCAL [None]
  - URINE ABNORMALITY [None]
